FAERS Safety Report 6616135-9 (Version None)
Quarter: 2010Q1

REPORT INFORMATION
  Report Type: 
  Country: None (occurrence: None)
  Receive Date: 20100305
  Receipt Date: 20100223
  Transmission Date: 20100710
  Serious: Yes (Other)
  Sender: FDA-Public Use
  Company Number: PHEH2010US02707

PATIENT
  Age: 42 Year
  Sex: Female

DRUGS (7)
  1. ZOMETA [Suspect]
     Indication: METASTASES TO BONE
     Dosage: 4 MG, QMO
     Route: 042
     Dates: start: 20090707, end: 20091124
  2. AVASTIN [Concomitant]
  3. TAXOL [Concomitant]
  4. ZOFRAN [Concomitant]
  5. COMPAZINE [Concomitant]
  6. LUPRON [Concomitant]
  7. CHANTIX [Concomitant]

REACTIONS (1)
  - OSTEONECROSIS [None]
